FAERS Safety Report 19235328 (Version 8)
Quarter: 2025Q1

REPORT INFORMATION
  Report Type: Report from Study
  Country: US (occurrence: US)
  Receive Date: 20210510
  Receipt Date: 20250103
  Transmission Date: 20250409
  Serious: Yes (Other)
  Sender: RANBAXY
  Company Number: US-SUN PHARMACEUTICAL INDUSTRIES LTD-2021R1-295136

PATIENT
  Age: 29 Year
  Sex: Female

DRUGS (2)
  1. ABSORICA LD [Suspect]
     Active Substance: ISOTRETINOIN
     Indication: Acne
     Dosage: 16 MILLIGRAM, BID
     Route: 065
     Dates: start: 20210402, end: 20210427
  2. ABSORICA LD [Suspect]
     Active Substance: ISOTRETINOIN
     Route: 065
     Dates: end: 20210430

REACTIONS (3)
  - Exposure during pregnancy [Unknown]
  - Ectopic pregnancy [Unknown]
  - Abortion spontaneous [Unknown]

NARRATIVE: CASE EVENT DATE: 20210430
